FAERS Safety Report 17553530 (Version 2)
Quarter: 2020Q1

REPORT INFORMATION
  Report Type: Report from Study
  Country: None (occurrence: CH)
  Receive Date: 20200318
  Receipt Date: 20200325
  Transmission Date: 20200409
  Serious: Yes (Hospitalization)
  Sender: FDA-Public Use
  Company Number: CH-ABBVIE-20K-151-3324654-00

PATIENT
  Sex: Male

DRUGS (3)
  1. DUODOPA [Suspect]
     Active Substance: CARBIDOPA\LEVODOPA
     Dosage: MD: 8.5 ML/H, CONTINUOUS DAY RATE: 3.6 ML/H, CDRATE 0 ML/H, ED: 1.5 ML?16 H THERAPY
     Route: 050
     Dates: start: 20180603, end: 20180905
  2. DUODOPA [Suspect]
     Active Substance: CARBIDOPA\LEVODOPA
     Indication: PARKINSON^S DISEASE
     Route: 050
     Dates: start: 20171025, end: 20180603
  3. DUODOPA [Suspect]
     Active Substance: CARBIDOPA\LEVODOPA
     Dosage: MD:8.5 ML/H, CD: 4.0 ML/H, CONTINUOUS NIGHT RATE 0 ML/H, CD 1.5 ML?16 H THERAPY
     Route: 050
     Dates: start: 20180905

REACTIONS (1)
  - Influenza [Unknown]
